FAERS Safety Report 18228828 (Version 2)
Quarter: 2020Q3

REPORT INFORMATION
  Report Type: Report from Study
  Country: None (occurrence: DE)
  Receive Date: 20200903
  Receipt Date: 20200909
  Transmission Date: 20201103
  Serious: Yes (Other)
  Sender: FDA-Public Use
  Company Number: DE-ABBVIE-20K-062-3547075-00

PATIENT
  Age: 55 Year
  Sex: Female
  Weight: 73 kg

DRUGS (8)
  1. MAVIRET [Suspect]
     Active Substance: GLECAPREVIR\PIBRENTASVIR
     Indication: CHRONIC HEPATITIS C
     Dosage: 100 MG GLECAPREVIR/40 MG PIBRENTASVIR TABLETS.
     Route: 048
     Dates: start: 20190809, end: 20191004
  2. LERCANIDIPINE [Concomitant]
     Active Substance: LERCANIDIPINE
     Indication: CARDIOVASCULAR DISORDER
  3. CANDESARTAN. [Concomitant]
     Active Substance: CANDESARTAN
     Indication: CARDIOVASCULAR DISORDER
  4. BISPROLOL [Concomitant]
     Active Substance: BISOPROLOL
     Indication: CARDIOVASCULAR DISORDER
  5. DOXAZOSIN [Concomitant]
     Active Substance: DOXAZOSIN MESYLATE
     Indication: CARDIOVASCULAR DISORDER
  6. URAPIDIL [Concomitant]
     Active Substance: URAPIDIL
     Indication: CARDIOVASCULAR DISORDER
  7. DIHYDRALAZINE [Concomitant]
     Active Substance: DIHYDRALAZINE
     Indication: CARDIOVASCULAR DISORDER
  8. METFORMIN [Concomitant]
     Active Substance: METFORMIN HYDROCHLORIDE
     Indication: PRODUCT USED FOR UNKNOWN INDICATION

REACTIONS (3)
  - Hypertensive crisis [Unknown]
  - Hypertension [Unknown]
  - Angina pectoris [Unknown]

NARRATIVE: CASE EVENT DATE: 20200424
